FAERS Safety Report 16759624 (Version 2)
Quarter: 2019Q3

REPORT INFORMATION
  Report Type: Spontaneous
  Country: JP (occurrence: JP)
  Receive Date: 20190830
  Receipt Date: 20190930
  Transmission Date: 20191005
  Serious: Yes (Hospitalization)
  Sender: FDA-Public Use
  Company Number: JP-PFIZER INC-2019286010

PATIENT
  Age: 72 Year
  Sex: Female

DRUGS (3)
  1. LINEZOLID. [Suspect]
     Active Substance: LINEZOLID
     Indication: ARTHRITIS
     Dosage: 600 MG, 2X/DAY
     Route: 048
     Dates: start: 20190624, end: 20190630
  2. LINEZOLID. [Suspect]
     Active Substance: LINEZOLID
     Dosage: 600 MG, 2X/DAY
     Route: 048
     Dates: start: 20190703, end: 20190712
  3. ZYVOX [Suspect]
     Active Substance: LINEZOLID
     Indication: ARTHRITIS
     Dosage: 600 MG, 2X/DAY
     Route: 041
     Dates: start: 20190701, end: 20190702

REACTIONS (5)
  - Off label use [Unknown]
  - Product use in unapproved indication [Unknown]
  - Osteoporosis [Unknown]
  - Urinary tract infection [Recovered/Resolved]
  - Chromaturia [Recovered/Resolved]

NARRATIVE: CASE EVENT DATE: 20190702
